FAERS Safety Report 12185696 (Version 1)
Quarter: 2016Q1

REPORT INFORMATION
  Report Type: Spontaneous
  Country: US (occurrence: US)
  Receive Date: 20160316
  Receipt Date: 20160316
  Transmission Date: 20160526
  Serious: No
  Sender: FDA-Public Use
  Company Number: US-WARNER CHILCOTT, LLC-1049221

PATIENT
  Age: 55 Year
  Sex: Female

DRUGS (1)
  1. ESTRACE [Suspect]
     Active Substance: ESTRADIOL
     Indication: HYSTERECTOMY
     Route: 067
     Dates: start: 20150401, end: 20150422

REACTIONS (8)
  - Wrong technique in product usage process [Recovered/Resolved]
  - Dyspnoea [Recovered/Resolved]
  - Musculoskeletal chest pain [Recovered/Resolved]
  - Breast pain [Recovered/Resolved]
  - Vision blurred [Recovered/Resolved]
  - Dizziness [Recovered/Resolved]
  - Chest discomfort [Recovered/Resolved]
  - Musculoskeletal pain [Recovered/Resolved]
